FAERS Safety Report 11866872 (Version 1)
Quarter: 2015Q4

REPORT INFORMATION
  Report Type: Report from Study
  Country: BR (occurrence: BR)
  Receive Date: 20151224
  Receipt Date: 20151224
  Transmission Date: 20160305
  Serious: Yes (Hospitalization)
  Sender: FDA-Public Use
  Company Number: PHHY2015BR118287

PATIENT
  Sex: Male
  Weight: 90 kg

DRUGS (1)
  1. SANDOSTATIN LAR DEPOT [Suspect]
     Active Substance: OCTREOTIDE ACETATE
     Indication: NEUROENDOCRINE TUMOUR
     Dosage: 30 MG, QMO (EVERY 28 DAYS)
     Route: 030
     Dates: start: 201308

REACTIONS (13)
  - Weight increased [Unknown]
  - Muscle twitching [Unknown]
  - Blood chromogranin A increased [Unknown]
  - Pulmonary mass [Unknown]
  - Weight decreased [Unknown]
  - Peripheral swelling [Unknown]
  - Diarrhoea [Unknown]
  - Pain in extremity [Unknown]
  - Pulmonary embolism [Unknown]
  - Application site pain [Unknown]
  - Application site mass [Unknown]
  - Gait disturbance [Unknown]
  - Application site erythema [Unknown]

NARRATIVE: CASE EVENT DATE: 2014
